FAERS Safety Report 4341951-6 (Version None)
Quarter: 2004Q2

REPORT INFORMATION
  Report Type: 
  Country: None (occurrence: None)
  Receive Date: 20040420
  Receipt Date: 20040413
  Transmission Date: 20050107
  Serious: Yes (Other)
  Sender: FDA-Public Use
  Company Number: PHBS2004JP05116

PATIENT
  Age: 28 Year
  Sex: Male

DRUGS (2)
  1. VOLTAREN [Suspect]
     Indication: CALCULUS URETERIC
     Route: 054
     Dates: start: 20040411, end: 20040411
  2. THIATON [Concomitant]
     Route: 048

REACTIONS (2)
  - BLOOD CREATINE PHOSPHOKINASE INCREASED [None]
  - RHABDOMYOLYSIS [None]
